FAERS Safety Report 19313347 (Version 1)
Quarter: 2021Q2

REPORT INFORMATION
  Report Type: Spontaneous
  Country: US (occurrence: US)
  Receive Date: 20210527
  Receipt Date: 20210527
  Transmission Date: 20210717
  Serious: Yes (Other)
  Sender: FDA-Public Use
  Company Number: None

PATIENT
  Age: 69 Year
  Sex: Female

DRUGS (1)
  1. BOTOX [Suspect]
     Active Substance: ONABOTULINUMTOXINA
     Dosage: ?          OTHER FREQUENCY:MIGRAINE;?
     Route: 030
     Dates: start: 20210416, end: 20210417

REACTIONS (6)
  - Dizziness [None]
  - Intestinal obstruction [None]
  - Eye disorder [None]
  - Dysphagia [None]
  - Swelling face [None]
  - Acute myocardial infarction [None]

NARRATIVE: CASE EVENT DATE: 20210517
